FAERS Safety Report 8349829-8 (Version None)
Quarter: 2012Q2

REPORT INFORMATION
  Report Type: 
  Country: None (occurrence: None)
  Receive Date: 20120510
  Receipt Date: 20120502
  Transmission Date: 20120825
  Serious: No
  Sender: FDA-Public Use
  Company Number: CA-JNJFOC-20120506459

PATIENT
  Sex: Female
  Weight: 56 kg

DRUGS (4)
  1. ETODOLAC [Concomitant]
     Route: 065
  2. METHOTREXATE [Concomitant]
     Route: 065
  3. REMICADE [Suspect]
     Indication: RHEUMATOID ARTHRITIS
     Route: 042
     Dates: start: 20090701
  4. PLAQUENIL [Concomitant]
     Route: 065

REACTIONS (1)
  - HERPES ZOSTER [None]
